FAERS Safety Report 18319126 (Version 1)
Quarter: 2020Q3

REPORT INFORMATION
  Report Type: Spontaneous
  Country: US (occurrence: US)
  Receive Date: 20200928
  Receipt Date: 20200928
  Transmission Date: 20201103
  Serious: Yes (Hospitalization)
  Sender: FDA-Public Use
  Company Number: None

PATIENT
  Sex: Female

DRUGS (18)
  1. CYCLOSPORINE. [Concomitant]
     Active Substance: CYCLOSPORINE
  2. VITAMIN D [Concomitant]
     Active Substance: VITAMIN D NOS
  3. PREDNISONE. [Concomitant]
     Active Substance: PREDNISONE
  4. INSULIN [Concomitant]
     Active Substance: INSULIN NOS
  5. LEVEMIR [Concomitant]
     Active Substance: INSULIN DETEMIR
  6. CLONIDINE. [Concomitant]
     Active Substance: CLONIDINE
  7. HYDRALAZINE [Concomitant]
     Active Substance: HYDRALAZINE HYDROCHLORIDE
  8. PRAVASTATIN. [Concomitant]
     Active Substance: PRAVASTATIN
  9. PRAVASTATIN. [Concomitant]
     Active Substance: PRAVASTATIN
  10. CELLCEPT [Concomitant]
     Active Substance: MYCOPHENOLATE MOFETIL\MYCOPHENOLATE MOFETIL HYDROCHLORIDE
  11. PREDNISONE. [Concomitant]
     Active Substance: PREDNISONE
  12. METOLAZONE. [Concomitant]
     Active Substance: METOLAZONE
  13. FUROSEMIDE. [Concomitant]
     Active Substance: FUROSEMIDE
  14. LEVOTHYROXINE. [Concomitant]
     Active Substance: LEVOTHYROXINE
  15. MYCOPHENOLATE [Suspect]
     Active Substance: MYCOPHENOLIC ACID
     Indication: RENAL TRANSPLANT
     Route: 048
     Dates: start: 20180824
  16. CARVEDILOL. [Concomitant]
     Active Substance: CARVEDILOL
  17. EZETIMIBE. [Concomitant]
     Active Substance: EZETIMIBE
  18. TRULICITY [Concomitant]
     Active Substance: DULAGLUTIDE

REACTIONS (2)
  - Haematochezia [None]
  - Faeces discoloured [None]
